FAERS Safety Report 10098610 (Version 1)
Quarter: 2014Q2

REPORT INFORMATION
  Report Type: Report from Study
  Country: JP (occurrence: JP)
  Receive Date: 20140423
  Receipt Date: 20140423
  Transmission Date: 20141212
  Serious: Yes (Hospitalization)
  Sender: FDA-Public Use
  Company Number: JP-PFIZER INC-2014108405

PATIENT
  Age: 51 Year
  Sex: Female
  Weight: 58.8 kg

DRUGS (23)
  1. REVATIO [Suspect]
     Indication: PULMONARY HYPERTENSION
     Dosage: 10 MG, 1X/DAY
     Route: 048
     Dates: start: 20110801, end: 20110906
  2. REVATIO [Suspect]
     Dosage: 10 MG, 1X/DAY
     Route: 048
     Dates: start: 20110913, end: 20110921
  3. REVATIO [Suspect]
     Dosage: 20 MG, 3X/DAY
     Dates: start: 20110922
  4. CARELOAD LA [Concomitant]
     Indication: PULMONARY HYPERTENSION
     Dosage: UNK
     Route: 048
     Dates: end: 20110816
  5. LASIX [Concomitant]
     Dosage: UNK
     Route: 048
     Dates: end: 20110906
  6. LASIX [Concomitant]
     Dosage: UNK
     Route: 048
     Dates: start: 20110913, end: 20111025
  7. LUPRAC [Concomitant]
     Dosage: UNK
     Route: 048
     Dates: end: 20110906
  8. WARFARIN [Concomitant]
     Indication: PULMONARY HYPERTENSION
     Dosage: UNK
     Route: 048
     Dates: end: 20110906
  9. WARFARIN [Concomitant]
     Dosage: UNK
     Route: 048
  10. SPIRONOLACTONE [Concomitant]
     Dosage: UNK
     Route: 048
     Dates: end: 20110906
  11. SPIRONOLACTONE [Concomitant]
     Dosage: UNK
     Route: 048
     Dates: start: 20110913
  12. THYRADIN S [Concomitant]
     Dosage: UNK
     Route: 048
     Dates: end: 20110906
  13. THYRADIN S [Concomitant]
     Dosage: UNK
     Route: 048
     Dates: start: 20110920
  14. SLOW K [Concomitant]
     Indication: ELECTROLYTE SUBSTITUTION THERAPY
     Dosage: UNK
     Route: 048
     Dates: end: 20110906
  15. SLOW K [Concomitant]
     Dosage: UNK
     Route: 048
     Dates: start: 20110927
  16. FLOLAN [Concomitant]
     Indication: PULMONARY HYPERTENSION
     Dosage: UNK
     Route: 042
     Dates: start: 20110809, end: 20110922
  17. DOBUTAMINE HYDROCHLORIDE [Concomitant]
     Indication: SUPPORTIVE CARE
     Dosage: UNK
     Route: 042
     Dates: start: 20110812, end: 20110906
  18. NORADRENALINE [Concomitant]
     Indication: SUPPORTIVE CARE
     Dosage: UNK
     Route: 042
     Dates: start: 20110906, end: 20110914
  19. LASIX [Concomitant]
     Dosage: UNK
     Route: 042
     Dates: start: 20110906, end: 20111010
  20. HEPACHRON [Concomitant]
     Indication: SUPPORTIVE CARE
     Dosage: UNK
     Route: 042
     Dates: start: 20110907, end: 20110921
  21. RASENAZOLIN [Concomitant]
     Indication: INFECTION PROPHYLAXIS
     Dosage: UNK
     Route: 042
     Dates: start: 20110906, end: 20110923
  22. OMEPRAL [Concomitant]
     Indication: GASTRITIS PROPHYLAXIS
     Dosage: UNK
     Route: 042
     Dates: start: 20110906, end: 20110913
  23. TAKEPRON [Concomitant]
     Indication: GASTRITIS PROPHYLAXIS
     Dosage: UNK
     Route: 048
     Dates: start: 20110914

REACTIONS (3)
  - Haemoptysis [Recovered/Resolved]
  - Atrial fibrillation [Recovered/Resolved]
  - Atrial flutter [Recovered/Resolved]
